FAERS Safety Report 7293793-X (Version None)
Quarter: 2011Q1

REPORT INFORMATION
  Report Type: 
  Country: None (occurrence: None)
  Receive Date: 20110203
  Receipt Date: 20081205
  Transmission Date: 20110831
  Serious: No
  Sender: FDA-Public Use
  Company Number: 2008-00161

PATIENT
  Sex: Female

DRUGS (1)
  1. ALL ZICAM PRODUCTS [Suspect]

REACTIONS (2)
  - AGEUSIA [None]
  - ANOSMIA [None]
